FAERS Safety Report 18025860 (Version 1)
Quarter: 2020Q3

REPORT INFORMATION
  Report Type: Spontaneous
  Country: ES (occurrence: ES)
  Receive Date: 20200715
  Receipt Date: 20200715
  Transmission Date: 20201103
  Serious: Yes (Hospitalization)
  Sender: FDA-Public Use
  Company Number: ES-TEVA-2020-ES-1799269

PATIENT
  Age: 91 Year
  Sex: Female

DRUGS (12)
  1. FERROGLICINA SULFATO (1549SU) [Concomitant]
  2. DAIVOBET 50 MICROGRAMOS/0,5 MG/G GEL , 1 TUBO DE 60 G [Concomitant]
  3. TRYPTIZOL [Concomitant]
     Active Substance: AMITRIPTYLINE HYDROCHLORIDE
  4. LOSARTAN AND HYDROCHLOROTHIAZIDE [Concomitant]
     Active Substance: HYDROCHLOROTHIAZIDE\LOSARTAN POTASSIUM
  5. BISOPROLOL 5 MG COMPRIMIDO [Suspect]
     Active Substance: BISOPROLOL
     Indication: CARDIAC FAILURE
     Dosage: 5 MILLIGRAM
     Route: 048
     Dates: start: 20150530, end: 20190909
  6. AMLODIPINO 5 MG COMPRIMIDO [Concomitant]
     Active Substance: AMLODIPINE BESYLATE
  7. ESCITALOPRAM 15 MG COMPRIMIDO [Concomitant]
  8. COLECALCIFEROL 25.000 UI SOLUCI?N/SUSPENSI?N ORAL [Concomitant]
  9. OMEPRAZOL 20 MG CAPSULA [Concomitant]
  10. STELARA 45 MG SOLUCION INYECTABLE EN JERINGA PRECARGADA , 1 JERINGA PR [Concomitant]
  11. ZOLPIDEM 10 MG COMPRIMIDO [Concomitant]
  12. ASPIRIN. [Concomitant]
     Active Substance: ASPIRIN

REACTIONS (2)
  - Sinus bradycardia [Recovered/Resolved]
  - Syncope [Recovered/Resolved]

NARRATIVE: CASE EVENT DATE: 20190906
